FAERS Safety Report 26055888 (Version 1)
Quarter: 2025Q4

REPORT INFORMATION
  Report Type: Spontaneous
  Country: US (occurrence: US)
  Receive Date: 20251118
  Receipt Date: 20251118
  Transmission Date: 20260118
  Serious: No
  Sender: ROCHE
  Company Number: US-ROCHE-10000430249

PATIENT
  Age: 69 Year
  Sex: Female
  Weight: 68.04 kg

DRUGS (4)
  1. ACTEMRA [Suspect]
     Active Substance: TOCILIZUMAB
     Indication: Rheumatoid arthritis
     Route: 058
     Dates: start: 2024
  2. ACTEMRA [Suspect]
     Active Substance: TOCILIZUMAB
     Route: 058
  3. CRESTOR [Concomitant]
     Active Substance: ROSUVASTATIN CALCIUM
     Indication: Blood cholesterol increased
     Dates: start: 2025
  4. METHOTREXATE [Concomitant]
     Active Substance: METHOTREXATE

REACTIONS (7)
  - Intentional dose omission [Unknown]
  - Weight increased [Recovered/Resolved]
  - Blood cholesterol increased [Not Recovered/Not Resolved]
  - Hypertension [Recovered/Resolved]
  - Alanine aminotransferase decreased [Not Recovered/Not Resolved]
  - Device issue [Unknown]
  - Device defective [Unknown]

NARRATIVE: CASE EVENT DATE: 20250101
